FAERS Safety Report 25917103 (Version 2)
Quarter: 2025Q4

REPORT INFORMATION
  Report Type: Spontaneous
  Country: JP (occurrence: JP)
  Receive Date: 20251014
  Receipt Date: 20251023
  Transmission Date: 20260118
  Serious: Yes (Hospitalization)
  Sender: AMGEN
  Company Number: JP-AMGEN-JPNSP2025200544

PATIENT
  Age: 8 Decade
  Sex: Male

DRUGS (3)
  1. BEVACIZUMAB [Suspect]
     Active Substance: BEVACIZUMAB
     Indication: Colorectal cancer metastatic
     Dosage: UNK
     Route: 065
  2. TRIFLURIDINE [Concomitant]
     Active Substance: TRIFLURIDINE
     Indication: Colorectal cancer metastatic
  3. TIPIRACIL [Concomitant]
     Active Substance: TIPIRACIL
     Indication: Colorectal cancer metastatic

REACTIONS (1)
  - Suicide attempt [Unknown]
